FAERS Safety Report 10237658 (Version 1)
Quarter: 2014Q2

REPORT INFORMATION
  Report Type: Spontaneous
  Country: CH (occurrence: CH)
  Receive Date: 20140616
  Receipt Date: 20140616
  Transmission Date: 20141212
  Serious: Yes (Death, Hospitalization)
  Sender: FDA-Public Use
  Company Number: CH-ROCHE-1418352

PATIENT
  Age: 85 Year
  Sex: Female
  Weight: 49 kg

DRUGS (10)
  1. LUCENTIS [Suspect]
     Indication: AGE-RELATED MACULAR DEGENERATION
     Route: 050
     Dates: start: 20130918
  2. LUCENTIS [Suspect]
     Route: 050
     Dates: start: 20131009
  3. LUCENTIS [Suspect]
     Route: 050
     Dates: start: 20131113
  4. LUCENTIS [Suspect]
     Route: 050
     Dates: start: 20140129
  5. LUCENTIS [Suspect]
     Route: 050
     Dates: start: 20140205
  6. LUCENTIS [Suspect]
     Route: 050
     Dates: start: 20140326
  7. VENTOLIN [Concomitant]
     Route: 065
  8. SYMBICORT [Concomitant]
     Dosage: DOSE: 200/6 MG
     Route: 065
  9. ATROVENT [Concomitant]
  10. CALCIMAGON-D3 [Concomitant]

REACTIONS (2)
  - Tachycardia [Fatal]
  - Atrial fibrillation [Unknown]
